FAERS Safety Report 16062055 (Version 2)
Quarter: 2019Q1

REPORT INFORMATION
  Report Type: Report from Study
  Country: US (occurrence: US)
  Receive Date: 20190312
  Receipt Date: 20190315
  Transmission Date: 20190418
  Serious: Yes (Other)
  Sender: FDA-Public Use
  Company Number: US-PFIZER INC-2019109594

PATIENT
  Age: 75 Year
  Sex: Female

DRUGS (12)
  1. IBRANCE [Suspect]
     Active Substance: PALBOCICLIB
     Dosage: 75 MG, 1X/DAY
     Route: 048
     Dates: start: 20180824
  2. IMURAN [Concomitant]
     Active Substance: AZATHIOPRINE
     Dosage: 20 MG, 1X/DAY
  3. LIPITOR [Concomitant]
     Active Substance: ATORVASTATIN CALCIUM
     Dosage: 20 MG, 1X/DAY
  4. ATENOLOL. [Suspect]
     Active Substance: ATENOLOL
     Dosage: UNKNOWN
     Route: 065
  5. TYLENOL [Concomitant]
     Active Substance: ACETAMINOPHEN
     Dosage: UNK
  6. PROTONIX [Concomitant]
     Active Substance: PANTOPRAZOLE SODIUM
     Dosage: UNK
  7. IBRANCE [Suspect]
     Active Substance: PALBOCICLIB
     Indication: BREAST CANCER
     Dosage: 100 MG, 1X/DAY
     Route: 048
     Dates: start: 20180824
  8. ASA [Concomitant]
     Active Substance: ASPIRIN
     Dosage: 81 MG, 1X/DAY
  9. DYAZIDE [Concomitant]
     Active Substance: HYDROCHLOROTHIAZIDE\TRIAMTERENE
     Dosage: UNK
  10. TAMOXIFEN [Suspect]
     Active Substance: TAMOXIFEN
     Dosage: UNKNOWN
     Route: 048
  11. FASLODEX [Suspect]
     Active Substance: FULVESTRANT
     Indication: BREAST CANCER RECURRENT
     Dosage: 500 MG, MONTHLY
     Route: 030
     Dates: start: 20180824
  12. XARELTO [Concomitant]
     Active Substance: RIVAROXABAN
     Dosage: 20 MG, 1X/DAY

REACTIONS (21)
  - Deep vein thrombosis [Unknown]
  - Cholelithiasis [Unknown]
  - Peripheral swelling [Unknown]
  - Pleural effusion [Unknown]
  - Neutropenia [Unknown]
  - Skin irritation [Unknown]
  - Gastric volvulus [Unknown]
  - Hiatus hernia [Unknown]
  - Fungal infection [Unknown]
  - Blood pressure increased [Unknown]
  - Intestinal obstruction [Unknown]
  - Renal cyst [Unknown]
  - Ascites [Unknown]
  - Rheumatoid arthritis [Unknown]
  - Depression [Unknown]
  - Pancytopenia [Unknown]
  - Anxiety [Unknown]
  - Medical device site discharge [Unknown]
  - Lipids increased [Unknown]
  - Neoplasm progression [Unknown]
  - Rash [Unknown]

NARRATIVE: CASE EVENT DATE: 201808
